FAERS Safety Report 15826521 (Version 3)
Quarter: 2019Q1

REPORT INFORMATION
  Report Type: Report from Study
  Country: GB (occurrence: GB)
  Receive Date: 20190115
  Receipt Date: 20190326
  Transmission Date: 20190417
  Serious: Yes (Hospitalization)
  Sender: FDA-Public Use
  Company Number: PHHO2017GB016787

PATIENT
  Age: 66 Year
  Sex: Male
  Weight: 76 kg

DRUGS (10)
  1. BLINDED PLACEBO [Suspect]
     Active Substance: INVESTIGATIONAL PRODUCT
     Indication: PSEUDOMONAS INFECTION
  2. TAZOCIN [Suspect]
     Active Substance: PIPERACILLIN SODIUM\TAZOBACTAM SODIUM
     Indication: PRODUCT USED FOR UNKNOWN INDICATION
     Dosage: UNK
     Route: 065
  3. SYMBICORT [Concomitant]
     Active Substance: BUDESONIDE\FORMOTEROL FUMARATE DIHYDRATE
     Indication: BRONCHIECTASIS
     Dosage: 200/6 MCG BD
     Route: 055
     Dates: start: 2010
  4. CARBOCISTEINE [Concomitant]
     Active Substance: CARBOCYSTEINE
     Indication: BRONCHIECTASIS
     Dosage: 750 MG, TID
     Route: 048
     Dates: start: 2012
  5. BLINDED TOBRAMYCIN INHALATION POWDER [Suspect]
     Active Substance: UNSPECIFIED INGREDIENT
     Indication: PSEUDOMONAS INFECTION
  6. SALBUTAMOL [Concomitant]
     Active Substance: ALBUTEROL
     Indication: BRONCHIECTASIS
     Dosage: 200 UG, PRN
     Route: 055
     Dates: start: 1997
  7. BLINDED NO TREATMENT RECEIVED [Suspect]
     Active Substance: INVESTIGATIONAL PRODUCT
     Indication: BRONCHIECTASIS
     Dosage: CODE NOT BROKEN
     Route: 055
     Dates: start: 20171123, end: 20180315
  8. BLINDED NO TREATMENT RECEIVED [Suspect]
     Active Substance: INVESTIGATIONAL PRODUCT
     Indication: PSEUDOMONAS INFECTION
  9. BLINDED PLACEBO [Suspect]
     Active Substance: INVESTIGATIONAL PRODUCT
     Indication: BRONCHIECTASIS
     Dosage: CODE NOT BROKEN
     Route: 055
     Dates: start: 20171123, end: 20180315
  10. BLINDED TOBRAMYCIN INHALATION POWDER [Suspect]
     Active Substance: UNSPECIFIED INGREDIENT
     Indication: BRONCHIECTASIS
     Dosage: CODE NOT BROKEN
     Route: 055
     Dates: start: 20171123, end: 20180315

REACTIONS (1)
  - Infective exacerbation of bronchiectasis [Recovered/Resolved]

NARRATIVE: CASE EVENT DATE: 20171127
